FAERS Safety Report 6557562-8 (Version None)
Quarter: 2010Q1

REPORT INFORMATION
  Report Type: 
  Country: None (occurrence: None)
  Receive Date: 20100129
  Receipt Date: 20100128
  Transmission Date: 20100710
  Serious: Yes (Hospitalization)
  Sender: FDA-Public Use
  Company Number: AT-ROCHE-682205

PATIENT
  Age: 62 Year
  Sex: Female
  Weight: 98 kg

DRUGS (33)
  1. RIVOTRIL [Suspect]
     Indication: DRUG USE FOR UNKNOWN INDICATION
     Route: 065
     Dates: end: 20090908
  2. RIVOTRIL [Suspect]
     Route: 065
     Dates: start: 20090909
  3. RIVOTRIL [Suspect]
     Route: 065
     Dates: start: 20090910, end: 20090926
  4. RIVOTRIL [Suspect]
     Route: 065
     Dates: start: 20090927, end: 20090928
  5. RIVOTRIL [Suspect]
     Route: 065
     Dates: start: 20090929
  6. CYMBALTA [Suspect]
     Indication: DRUG USE FOR UNKNOWN INDICATION
     Route: 065
     Dates: end: 20090911
  7. CYMBALTA [Suspect]
     Route: 065
     Dates: start: 20090912, end: 20090914
  8. CYMBALTA [Suspect]
     Route: 065
     Dates: start: 20090915
  9. TIAPRIDE [Suspect]
     Indication: DRUG USE FOR UNKNOWN INDICATION
     Dosage: DRUG REPORTED AS: DELPRAL
     Route: 065
  10. LAMOTRIGINE [Suspect]
     Indication: DRUG USE FOR UNKNOWN INDICATION
     Dosage: SOLUBLE TABLETS, DRUG REPORTED AS: GEROLAMIC
     Route: 065
  11. QUILONORM RETARD [Suspect]
     Indication: DRUG USE FOR UNKNOWN INDICATION
     Dosage: FILM COATED TABLETS
     Route: 065
     Dates: end: 20090921
  12. QUILONORM RETARD [Suspect]
     Route: 065
     Dates: start: 20090922, end: 20090928
  13. QUILONORM RETARD [Suspect]
     Route: 065
     Dates: start: 20090930
  14. WELLBUTRIN [Suspect]
     Indication: DRUG USE FOR UNKNOWN INDICATION
     Route: 065
  15. ABILIFY [Concomitant]
     Dates: end: 20090928
  16. DEFLAMAT [Concomitant]
     Dates: end: 20090928
  17. DIAMICRON [Concomitant]
     Dates: end: 20090928
  18. GLUCOPHAGE [Concomitant]
     Dosage: FILM COATED TABLET
     Dates: end: 20090927
  19. LYRICA [Concomitant]
     Dates: start: 20090925, end: 20090928
  20. MEXALEN [Concomitant]
     Dates: start: 20090922
  21. MEXALEN [Concomitant]
     Dates: start: 20090923, end: 20090924
  22. NEUROBION FORTE [Concomitant]
     Dates: end: 20090927
  23. NEXIUM [Concomitant]
     Dates: start: 20090911, end: 20090928
  24. NOVALGIN [Concomitant]
     Dates: start: 20090923, end: 20090924
  25. PANTOPRAZOLE [Concomitant]
     Route: 042
     Dates: start: 20090930
  26. METOCLOPRAMIDE HYDROCHLORIDE [Concomitant]
     Dates: start: 20090925
  27. METOCLOPRAMIDE HYDROCHLORIDE [Concomitant]
     Dates: start: 20090926, end: 20090927
  28. SEROQUEL [Concomitant]
     Dates: end: 20090927
  29. TAVANIC [Concomitant]
     Dates: start: 20090928
  30. TAVANIC [Concomitant]
     Route: 042
     Dates: start: 20090929
  31. VOLTAREN [Concomitant]
     Dates: start: 20090925
  32. VOLTAREN [Concomitant]
     Dates: start: 20090926, end: 20090927
  33. VOLTAREN [Concomitant]
     Dates: start: 20090928

REACTIONS (1)
  - ILEUS [None]
